FAERS Safety Report 9283980 (Version 3)
Quarter: 2013Q2

REPORT INFORMATION
  Report Type: Spontaneous
  Country: US (occurrence: US)
  Receive Date: 20130510
  Receipt Date: 20130610
  Transmission Date: 20140414
  Serious: Yes (Other)
  Sender: FDA-Public Use
  Company Number: US-PFIZER INC-2013145314

PATIENT
  Age: 55 Year
  Sex: Female
  Weight: 78.91 kg

DRUGS (4)
  1. LYRICA [Suspect]
     Indication: PAIN IN EXTREMITY
     Dosage: 75 MG, 2X/DAY
     Dates: start: 2011, end: 201304
  2. LYRICA [Suspect]
     Indication: DIABETIC NEUROPATHY
  3. CYMBALTA [Suspect]
     Indication: DEPRESSION
     Dosage: UNK
  4. METFORMIN [Concomitant]
     Indication: DIABETES MELLITUS
     Dosage: 1000 MG, 2X/DAY

REACTIONS (2)
  - Cataract [Unknown]
  - Drug ineffective [Unknown]
